FAERS Safety Report 17287445 (Version 1)
Quarter: 2020Q1

REPORT INFORMATION
  Report Type: Spontaneous
  Country: GB (occurrence: GB)
  Receive Date: 20200120
  Receipt Date: 20200120
  Transmission Date: 20200409
  Serious: Yes (Other)
  Sender: FDA-Public Use
  Company Number: GB-TEVA-2020-GB-1169233

PATIENT
  Age: 5 Month
  Sex: Female
  Weight: 9.97 kg

DRUGS (1)
  1. CLINDAMYCIN HYDROCHLORIDE. [Suspect]
     Active Substance: CLINDAMYCIN HYDROCHLORIDE
     Indication: MASTITIS
     Dosage: 600 MG
     Route: 048
     Dates: start: 20191209, end: 20191216

REACTIONS (4)
  - Diarrhoea [Recovering/Resolving]
  - Candida infection [Recovering/Resolving]
  - Constipation [Recovering/Resolving]
  - Abdominal pain [Recovering/Resolving]

NARRATIVE: CASE EVENT DATE: 20191209
